FAERS Safety Report 5417215-6 (Version None)
Quarter: 2007Q3

REPORT INFORMATION
  Report Type: 
  Country: None (occurrence: None)
  Receive Date: 20070718
  Receipt Date: 20060628
  Transmission Date: 20080115
  Serious: Yes (Other)
  Sender: FDA-Public Use
  Company Number: 2005134691

PATIENT
  Age: 62 Year
  Sex: Male
  Weight: 92.9874 kg

DRUGS (3)
  1. CELEBREX [Suspect]
     Indication: ILL-DEFINED DISORDER
  2. BEXTRA [Suspect]
     Indication: ARTHRALGIA
     Dates: start: 20020802, end: 20031007
  3. VIOXX [Suspect]
     Indication: ILL-DEFINED DISORDER

REACTIONS (1)
  - EMBOLISM [None]
